FAERS Safety Report 21305284 (Version 3)
Quarter: 2022Q4

REPORT INFORMATION
  Report Type: Report from Study
  Country: US (occurrence: US)
  Receive Date: 20220907
  Receipt Date: 20221021
  Transmission Date: 20230113
  Serious: Yes (Death, Hospitalization, Other)
  Sender: FDA-Public Use
  Company Number: US-ACADIA PHARMACEUTICALS INC.-ACA-2022-PIM-002907

PATIENT
  Sex: Male

DRUGS (10)
  1. NUPLAZID [Suspect]
     Active Substance: PIMAVANSERIN TARTRATE
     Indication: Parkinson^s disease psychosis
     Dosage: 34 MILLIGRAM, QD
     Route: 065
  2. fluoroacetamide [Concomitant]
  3. RYTARY [Concomitant]
     Active Substance: CARBIDOPA\LEVODOPA
  4. TAMSULOSIN [Concomitant]
     Active Substance: TAMSULOSIN
  5. MELATONIN [Concomitant]
     Active Substance: MELATONIN
  6. METOPROLOL [Concomitant]
     Active Substance: METOPROLOL
  7. PLAVIX [Concomitant]
     Active Substance: CLOPIDOGREL BISULFATE
  8. ATORVASTATIN [Concomitant]
     Active Substance: ATORVASTATIN
  9. ESCITALOPRAM OXALATE [Concomitant]
     Active Substance: ESCITALOPRAM OXALATE
  10. ELIQUIS [Concomitant]
     Active Substance: APIXABAN

REACTIONS (2)
  - Death [Fatal]
  - Gastric disorder [Unknown]
